FAERS Safety Report 8188745-1 (Version None)
Quarter: 2012Q1

REPORT INFORMATION
  Report Type: 
  Country: None (occurrence: None)
  Receive Date: 20120306
  Receipt Date: 20120302
  Transmission Date: 20120608
  Serious: Yes (Hospitalization)
  Sender: FDA-Public Use
  Company Number: CA-ABBOTT-12P-028-0903507-00

PATIENT
  Sex: Female
  Weight: 50 kg

DRUGS (4)
  1. ASPIRIN [Concomitant]
     Indication: RETINAL ARTERY THROMBOSIS
  2. METHOTREXATE [Concomitant]
     Indication: PRODUCT USED FOR UNKNOWN INDICATION
     Dosage: 0.5CC
  3. HUMIRA [Suspect]
     Indication: CROHN'S DISEASE
     Route: 058
     Dates: start: 20111023
  4. ASPIRIN [Concomitant]
     Indication: COAGULOPATHY

REACTIONS (1)
  - GASTRIC HAEMORRHAGE [None]
